FAERS Safety Report 16177808 (Version 1)
Quarter: 2019Q2

REPORT INFORMATION
  Report Type: Spontaneous
  Country: CA (occurrence: CA)
  Receive Date: 20190410
  Receipt Date: 20190410
  Transmission Date: 20190711
  Serious: Yes (Hospitalization, Congenital Anomaly, Other)
  Sender: FDA-Public Use
  Company Number: CA-GLAXOSMITHKLINE-A0817816A

PATIENT
  Age: 0 Day
  Sex: Male
  Weight: 3.18 kg

DRUGS (1)
  1. PAXIL [Suspect]
     Active Substance: PAROXETINE HYDROCHLORIDE
     Indication: PRODUCT USED FOR UNKNOWN INDICATION
     Route: 064

REACTIONS (6)
  - Ventricular septal defect [Unknown]
  - Bicuspid aortic valve [Unknown]
  - Congenital aortic valve stenosis [Unknown]
  - Speech disorder developmental [Unknown]
  - Arrhythmia [Unknown]
  - Foetal exposure during pregnancy [Unknown]

NARRATIVE: CASE EVENT DATE: 20021016
